FAERS Safety Report 8722670 (Version 8)
Quarter: 2013Q3

REPORT INFORMATION
  Report Type: Spontaneous
  Country: US (occurrence: US)
  Receive Date: 20120814
  Receipt Date: 20130708
  Transmission Date: 20140515
  Serious: Yes (Hospitalization, Other)
  Sender: FDA-Public Use
  Company Number: US-009507513-1208USA002047

PATIENT
  Sex: Female
  Weight: 116.1 kg

DRUGS (9)
  1. FOSAMAX [Suspect]
     Indication: OSTEOPENIA
     Dosage: 70 MG, UNK
     Route: 048
     Dates: start: 200506, end: 200706
  2. FOSAMAX [Suspect]
     Indication: RHEUMATOID ARTHRITIS
  3. FOSAMAX PLUS D [Suspect]
     Indication: OSTEOPENIA
     Dosage: UNK
     Route: 048
     Dates: start: 200705, end: 201006
  4. FOSAMAX PLUS D [Suspect]
     Indication: RHEUMATOID ARTHRITIS
  5. NAPROXEN [Concomitant]
     Indication: RHEUMATOID ARTHRITIS
  6. CORTICOSTEROIDS (UNSPECIFIED) [Concomitant]
     Dosage: UNK
     Dates: start: 1994, end: 201202
  7. PLAQUENIL [Concomitant]
     Indication: RHEUMATOID ARTHRITIS
     Dosage: 200 MG, BID
  8. METHOTREXATE [Concomitant]
     Indication: RHEUMATOID ARTHRITIS
     Dosage: 25 MG, QW
     Route: 058
  9. ESTRADIOL [Concomitant]

REACTIONS (53)
  - Intramedullary rod insertion [Not Recovered/Not Resolved]
  - Cystopexy [Unknown]
  - Fracture nonunion [Unknown]
  - Internal fixation of fracture [Unknown]
  - Medical device removal [Unknown]
  - Fracture nonunion [Unknown]
  - Internal fixation of fracture [Unknown]
  - Carpal tunnel decompression [Unknown]
  - Cholecystectomy [Unknown]
  - Femur fracture [Unknown]
  - Low turnover osteopathy [Unknown]
  - Fall [Unknown]
  - Depression [Not Recovered/Not Resolved]
  - Anxiety [Not Recovered/Not Resolved]
  - Vitamin D deficiency [Unknown]
  - Hypertension [Unknown]
  - Hyperlipidaemia [Unknown]
  - Essential tremor [Unknown]
  - Incontinence [Unknown]
  - Carpal tunnel syndrome [Unknown]
  - Neuropathy peripheral [Unknown]
  - Fibromyalgia [Unknown]
  - Urinary incontinence [Unknown]
  - Fatigue [Unknown]
  - Sleep apnoea syndrome [Unknown]
  - Myositis [Unknown]
  - Urinary tract infection [Unknown]
  - Bursitis [Unknown]
  - Arthropathy [Unknown]
  - Polyuria [Unknown]
  - Increased tendency to bruise [Unknown]
  - Arthritis [Unknown]
  - Weight increased [Unknown]
  - Fall [Unknown]
  - Sensory loss [Unknown]
  - Osteoarthritis [Unknown]
  - Osteoarthritis [Unknown]
  - Osteoporosis [Unknown]
  - Bursitis [Unknown]
  - Haemorrhagic anaemia [Unknown]
  - Anaemia of chronic disease [Not Recovered/Not Resolved]
  - Device failure [Unknown]
  - Cataract [Unknown]
  - Asthenia [Unknown]
  - Gastrooesophageal reflux disease [Unknown]
  - Myalgia [Unknown]
  - Back pain [Unknown]
  - Muscle spasms [Unknown]
  - Pruritus [Unknown]
  - Drug ineffective [Unknown]
  - Local swelling [Unknown]
  - Off label use [Unknown]
  - Muscle spasms [Unknown]
